FAERS Safety Report 5652472-2 (Version None)
Quarter: 2008Q1

REPORT INFORMATION
  Report Type: 
  Country: None (occurrence: None)
  Receive Date: 20080306
  Receipt Date: 20080226
  Transmission Date: 20080703
  Serious: Yes (Other)
  Sender: FDA-Public Use
  Company Number: IE-BAYER-200810567BNE

PATIENT
  Sex: Female

DRUGS (2)
  1. AVELOX [Suspect]
     Indication: LUNG INFECTION
     Dosage: TOTAL DAILY DOSE: 400 MG
  2. PULMICORT [Concomitant]
     Indication: DRUG USE FOR UNKNOWN INDICATION
     Dosage: TOTAL DAILY DOSE: 800 ?G

REACTIONS (7)
  - DIZZINESS [None]
  - EAR PAIN [None]
  - HYPERSENSITIVITY [None]
  - PRURITUS [None]
  - SYNCOPE [None]
  - VASODILATATION [None]
  - VOMITING [None]
